FAERS Safety Report 4822938-3 (Version None)
Quarter: 2005Q4

REPORT INFORMATION
  Report Type: 
  Country: None (occurrence: None)
  Receive Date: 20051104
  Receipt Date: 20051027
  Transmission Date: 20060501
  Serious: Yes (Hospitalization, Other)
  Sender: FDA-Public Use
  Company Number: A211318

PATIENT
  Age: 1 Day
  Sex: Male
  Weight: 4.12 kg

DRUGS (2)
  1. ATARAX [Suspect]
     Indication: ANXIETY
     Dosage: 112.5 MG (3 IN 1 D), PLACENTAL
     Route: 064
     Dates: start: 20020101
  2. ATARAX [Suspect]
     Indication: CONDITION AGGRAVATED
     Dosage: 112.5 MG (3 IN 1 D), PLACENTAL
     Route: 064
     Dates: start: 20020101

REACTIONS (8)
  - ATRIAL SEPTAL DEFECT [None]
  - CAESAREAN SECTION [None]
  - CONVULSION NEONATAL [None]
  - DRUG EXPOSURE DURING PREGNANCY [None]
  - DRUG WITHDRAWAL SYNDROME NEONATAL [None]
  - GRAND MAL CONVULSION [None]
  - HYPOTONIA NEONATAL [None]
  - TRICUSPID VALVE INCOMPETENCE [None]
